FAERS Safety Report 6553768-2 (Version None)
Quarter: 2010Q1

REPORT INFORMATION
  Report Type: 
  Country: None (occurrence: None)
  Receive Date: 20100125
  Receipt Date: 20100125
  Transmission Date: 20100710
  Serious: Yes (Other)
  Sender: FDA-Public Use
  Company Number: None

PATIENT
  Age: 57 Year
  Sex: Female
  Weight: 68.0396 kg

DRUGS (1)
  1. RESTASIS [Suspect]
     Indication: SJOGREN'S SYNDROME
     Dosage: ? X 2 DROPS TWICE DAILY OPTICAL (OCT-NOV-DEC 2010)

REACTIONS (3)
  - EYE IRRITATION [None]
  - OCULAR HYPERAEMIA [None]
  - PRODUCT QUALITY ISSUE [None]
